FAERS Safety Report 8315480-9 (Version None)
Quarter: 2012Q2

REPORT INFORMATION
  Report Type: 
  Country: None (occurrence: None)
  Receive Date: 20120426
  Receipt Date: 20120418
  Transmission Date: 20120825
  Serious: Yes (Congenital Anomaly)
  Sender: FDA-Public Use
  Company Number: DE-TEVA-333966GER

PATIENT
  Age: 0 Year
  Sex: Male
  Weight: 52 kg

DRUGS (8)
  1. FLUOXETINE [Suspect]
     Route: 064
     Dates: start: 20100130, end: 20100817
  2. LEVOTHYROXINE SODIUM [Concomitant]
     Route: 064
  3. MOVICOL [Concomitant]
     Route: 064
  4. ZOLPIDEM [Concomitant]
     Dosage: THREE TIMES, UNKNOWN DOSAGE
     Route: 064
  5. FOLSAURE [Concomitant]
     Route: 064
  6. RENNIE [Concomitant]
     Route: 064
  7. SEDACUR [Concomitant]
     Route: 064
  8. VALIUM [Concomitant]
     Route: 064

REACTIONS (1)
  - TRANSPOSITION OF THE GREAT VESSELS [None]
